FAERS Safety Report 7268646-3 (Version None)
Quarter: 2011Q1

REPORT INFORMATION
  Report Type: 
  Country: None (occurrence: None)
  Receive Date: 20110201
  Receipt Date: 20110127
  Transmission Date: 20110831
  Serious: Yes (Other)
  Sender: FDA-Public Use
  Company Number: US-ABBOTT-10P-163-0644985-00

PATIENT
  Sex: Male
  Weight: 3.042 kg

DRUGS (1)
  1. HUMIRA [Suspect]
     Indication: DRUG EXPOSURE DURING PREGNANCY
     Route: 064

REACTIONS (4)
  - DRUG EXPOSURE DURING PREGNANCY [None]
  - FOETAL DISTRESS SYNDROME [None]
  - NEONATAL RESPIRATORY DISTRESS SYNDROME [None]
  - UMBILICAL CORD AROUND NECK [None]
